FAERS Safety Report 4562416-2 (Version None)
Quarter: 2005Q1

REPORT INFORMATION
  Report Type: 
  Country: None (occurrence: None)
  Receive Date: 20050127
  Receipt Date: 20041220
  Transmission Date: 20050727
  Serious: No
  Sender: FDA-Public Use
  Company Number: US-BRISTOL-MYERS SQUIBB COMPANY-12801502

PATIENT
  Age: 17 Month
  Sex: Male
  Weight: 11 kg

DRUGS (2)
  1. KENALOG [Suspect]
     Indication: URTICARIA
     Route: 051
     Dates: start: 20040101, end: 20040101
  2. ZYRTEC [Concomitant]
     Dosage: 1 TSP DAILY
     Route: 048

REACTIONS (1)
  - INJECTION SITE ATROPHY [None]
